FAERS Safety Report 4492274-6 (Version None)
Quarter: 2004Q3

REPORT INFORMATION
  Report Type: 
  Country: None (occurrence: None)
  Receive Date: 20040920
  Receipt Date: 20040322
  Transmission Date: 20050211
  Serious: Yes (Other)
  Sender: FDA-Public Use
  Company Number: 04-095-0151

PATIENT
  Age: 73 Year
  Sex: Male
  Weight: 70.3075 kg

DRUGS (4)
  1. LEUCOVORIN CALCIUM [Suspect]
     Indication: COLON CANCER METASTATIC
     Dosage: WEEKLY BY IV PUSH
     Route: 042
     Dates: start: 20040302
  2. LEUCOVORIN CALCIUM [Suspect]
     Indication: COLON CANCER METASTATIC
     Dosage: WEEKLY BY IV PUSH
     Route: 042
     Dates: start: 20040309
  3. LEUCOVORIN CALCIUM [Suspect]
     Indication: COLON CANCER METASTATIC
     Dosage: WEEKLY BY IV PUSH
     Route: 042
     Dates: start: 20040316
  4. ATROVENT [Concomitant]

REACTIONS (4)
  - DIARRHOEA [None]
  - ERYTHEMA [None]
  - FATIGUE [None]
  - PAIN IN EXTREMITY [None]
